FAERS Safety Report 25951947 (Version 2)
Quarter: 2025Q4

REPORT INFORMATION
  Report Type: Spontaneous
  Country: IL (occurrence: IL)
  Receive Date: 20251023
  Receipt Date: 20251114
  Transmission Date: 20260118
  Serious: Yes (Hospitalization)
  Sender: JOHNSON AND JOHNSON
  Company Number: IL-JNJFOC-20251020376

PATIENT
  Age: 57 Year
  Sex: Male

DRUGS (1)
  1. BALVERSA [Suspect]
     Active Substance: ERDAFITINIB
     Indication: Product used for unknown indication
     Route: 048

REACTIONS (5)
  - Mucosal inflammation [Unknown]
  - Dysphagia [Unknown]
  - Feeding disorder [Unknown]
  - Oropharyngeal pain [Unknown]
  - Erythema [Unknown]
